FAERS Safety Report 5102672-5 (Version None)
Quarter: 2006Q3

REPORT INFORMATION
  Report Type: 
  Country: None (occurrence: None)
  Receive Date: 20060907
  Receipt Date: 20060829
  Transmission Date: 20061208
  Serious: Yes (Hospitalization, Other)
  Sender: FDA-Public Use
  Company Number: 2006090628

PATIENT
  Age: 78 Year
  Sex: Male
  Weight: 80 kg

DRUGS (5)
  1. NORVASC [Suspect]
     Indication: HYPERTENSION
     Dosage: 5 MG (5 MG,1 IN 1 D),ORAL
     Route: 048
     Dates: start: 19960304
  2. XANEF (ENALAPRIL MALEATE) [Concomitant]
  3. ISOKET RETARD (ISOSORBIDE DINITRATE) [Concomitant]
  4. CORVATON RETARD (MOLSIDOMINE) [Concomitant]
  5. MARCUMAR [Concomitant]

REACTIONS (5)
  - BILIARY DILATATION [None]
  - GALLBLADDER DISORDER [None]
  - GAMMA-GLUTAMYLTRANSFERASE INCREASED [None]
  - RIGHT VENTRICULAR FAILURE [None]
  - THROMBOCYTOPENIA [None]
